FAERS Safety Report 10425266 (Version 2)
Quarter: 2014Q4

REPORT INFORMATION
  Report Type: Spontaneous
  Country: JP (occurrence: JP)
  Receive Date: 20140902
  Receipt Date: 20141008
  Transmission Date: 20150528
  Serious: Yes (Death, Life-Threatening, Hospitalization, Other)
  Sender: FDA-Public Use
  Company Number: PHHY2012JP135432

PATIENT
  Age: 62 Year
  Sex: Male

DRUGS (1)
  1. ZOMETA [Suspect]
     Active Substance: ZOLEDRONIC ACID
     Indication: METASTASES TO BONE
     Dosage: 4 MG, EVERY 4 WEEKS
     Route: 065
     Dates: start: 20120728

REACTIONS (15)
  - Pneumonia aspiration [Fatal]
  - Odynophagia [Not Recovered/Not Resolved]
  - Quality of life decreased [Unknown]
  - Sinusitis [Unknown]
  - Exposed bone in jaw [Unknown]
  - Pain in jaw [Unknown]
  - Mastication disorder [Unknown]
  - Velopharyngeal incompetence [Unknown]
  - Osteonecrosis of jaw [Not Recovered/Not Resolved]
  - Dysphagia [Unknown]
  - Tooth loss [Unknown]
  - Bone loss [Unknown]
  - Neutropenia [Unknown]
  - Purulent discharge [Unknown]
  - Dysphonia [Unknown]
